FAERS Safety Report 15868940 (Version 1)
Quarter: 2019Q1

REPORT INFORMATION
  Report Type: Spontaneous
  Country: US (occurrence: US)
  Receive Date: 20190125
  Receipt Date: 20190125
  Transmission Date: 20190417
  Serious: Yes (Hospitalization, Disabling)
  Sender: FDA-Public Use
  Company Number: None

PATIENT
  Age: 20 Year
  Sex: Female
  Weight: 38.25 kg

DRUGS (5)
  1. VITAMIN D3-50 50,000 UNIT [Concomitant]
  2. AROMATHERAPY [Concomitant]
  3. IRON 65MG [Concomitant]
  4. FLUOXETINE [Suspect]
     Active Substance: FLUOXETINE HYDROCHLORIDE
     Indication: DEPRESSION
     Dosage: ?          QUANTITY:30 CAPSULE(S);?
     Route: 048
     Dates: start: 20190102, end: 20190111
  5. DULOXETINE 20 MG, [Concomitant]

REACTIONS (4)
  - Depression [None]
  - Anxiety [None]
  - Insomnia [None]
  - Suicidal ideation [None]

NARRATIVE: CASE EVENT DATE: 20190104
